FAERS Safety Report 4707807-1 (Version None)
Quarter: 2005Q2

REPORT INFORMATION
  Report Type: 
  Country: None (occurrence: None)
  Receive Date: 20050629
  Receipt Date: 20050315
  Transmission Date: 20051028
  Serious: No
  Sender: FDA-Public Use
  Company Number: 05P-163-0294046-00

PATIENT
  Age: 56 Year
  Sex: Female
  Weight: 52.1637 kg

DRUGS (9)
  1. HUMIRA [Suspect]
     Indication: RHEUMATOID ARTHRITIS
     Dosage: 40 MG, 1 IN 2 WK, SUBCUTANEOUS
     Route: 058
     Dates: start: 20050217
  2. DEXAMETHASONE [Concomitant]
  3. FLUDROCORTISONE ACETATE [Concomitant]
  4. METHOTREXATE SODIUM [Concomitant]
  5. PHENOBARBITAL [Concomitant]
  6. LEVOTHYROXINE SODIUM [Concomitant]
  7. FOLIC ACID [Concomitant]
  8. B12 [Concomitant]
  9. PAROXETINE HYDROCHLORIDE [Concomitant]

REACTIONS (5)
  - COUGH [None]
  - DIZZINESS [None]
  - HEADACHE [None]
  - NASAL CONGESTION [None]
  - PYREXIA [None]
